FAERS Safety Report 7253605-7 (Version None)
Quarter: 2011Q1

REPORT INFORMATION
  Report Type: 
  Country: None (occurrence: None)
  Receive Date: 20110129
  Receipt Date: 20100308
  Transmission Date: 20110831
  Serious: No
  Sender: FDA-Public Use
  Company Number: US-ABBOTT-10P-163-0631262-00

PATIENT
  Sex: Female
  Weight: 54.48 kg

DRUGS (2)
  1. HUMIRA [Suspect]
     Dates: start: 20090201
  2. HUMIRA [Suspect]
     Indication: PSORIASIS
     Dates: start: 20090105, end: 20090201

REACTIONS (1)
  - DRUG INEFFECTIVE [None]
